FAERS Safety Report 8414908-3 (Version None)
Quarter: 2012Q2

REPORT INFORMATION
  Report Type: 
  Country: None (occurrence: None)
  Receive Date: 20120601
  Receipt Date: 20120601
  Transmission Date: 20120825
  Serious: Yes (Other)
  Sender: FDA-Public Use
  Company Number: None

PATIENT
  Age: 46 Year
  Sex: Female
  Weight: 72.5755 kg

DRUGS (1)
  1. AZITHROMYCIN [Suspect]
     Indication: PHARYNGITIS STREPTOCOCCAL
     Dosage: 6 ONCE DAILY
     Dates: start: 20120528, end: 20120531

REACTIONS (8)
  - DYSPHONIA [None]
  - DYSPHAGIA [None]
  - VULVOVAGINAL DISCOMFORT [None]
  - SPEECH DISORDER [None]
  - WHEEZING [None]
  - VAGINAL MUCOSAL BLISTERING [None]
  - DIARRHOEA [None]
  - HEADACHE [None]
